FAERS Safety Report 7215910-X (Version None)
Quarter: 2011Q1

REPORT INFORMATION
  Report Type: 
  Country: None (occurrence: None)
  Receive Date: 20110105
  Receipt Date: 20110105
  Transmission Date: 20110831
  Serious: Yes (Disabling, Other)
  Sender: FDA-Public Use
  Company Number: None

PATIENT
  Age: 10 Year
  Sex: Female
  Weight: 36.2878 kg

DRUGS (4)
  1. XYZAL [Concomitant]
  2. ADVAIR DISKUS 100/50 [Suspect]
     Indication: ASTHMA
     Dosage: 1 PUFF INHALED TWICE A DAY PO
     Route: 048
     Dates: start: 20100720, end: 20101220
  3. ZYRTEC [Concomitant]
  4. XOPENEX [Concomitant]

REACTIONS (4)
  - FOOD ALLERGY [None]
  - HYPERSENSITIVITY [None]
  - URTICARIA [None]
  - DRUG EFFECT DECREASED [None]
